FAERS Safety Report 9370239 (Version 2)
Quarter: 2013Q3

REPORT INFORMATION
  Report Type: Spontaneous
  Country: US (occurrence: US)
  Receive Date: 20130626
  Receipt Date: 20130702
  Transmission Date: 20140515
  Serious: No
  Sender: FDA-Public Use
  Company Number: US-PFIZER INC-2013187648

PATIENT
  Sex: Male

DRUGS (2)
  1. LEVOXYL [Suspect]
     Indication: AUTOIMMUNE THYROIDITIS
     Dosage: 112 UG, UNK
  2. LEVOXYL [Suspect]
     Dosage: 137 UG, UNK

REACTIONS (3)
  - Urticaria [Unknown]
  - Activities of daily living impaired [Unknown]
  - Thyroid function test abnormal [Unknown]
